FAERS Safety Report 8484750-6 (Version None)
Quarter: 2012Q3

REPORT INFORMATION
  Report Type: 
  Country: None (occurrence: None)
  Receive Date: 20120703
  Receipt Date: 20120613
  Transmission Date: 20120928
  Serious: No
  Sender: FDA-Public Use
  Company Number: US-TEVA-342864USA

PATIENT
  Sex: Female
  Weight: 69.008 kg

DRUGS (3)
  1. OLMESARTAN MEDOXOMIL [Concomitant]
     Indication: HYPERTENSION
     Dosage: 40 MILLIGRAM;
     Route: 048
  2. NUVIGIL [Suspect]
     Indication: HYPERSOMNIA
     Dosage: 250 MILLIGRAM;
     Route: 048
     Dates: start: 20120601, end: 20120607
  3. SPIRONOLACTONE [Concomitant]
     Indication: HYPERTENSION
     Dosage: 25 MILLIGRAM;
     Route: 048

REACTIONS (4)
  - PANIC ATTACK [None]
  - NERVOUSNESS [None]
  - HEART RATE IRREGULAR [None]
  - ANXIETY [None]
